FAERS Safety Report 25632507 (Version 1)
Quarter: 2025Q3

REPORT INFORMATION
  Report Type: Spontaneous
  Country: US (occurrence: None)
  Receive Date: 20250731
  Receipt Date: 20250731
  Transmission Date: 20251021
  Serious: Yes (Death, Life-Threatening, Hospitalization, Disabling)
  Sender: FDA-CTU
  Company Number: None

PATIENT
  Age: 93 Year
  Sex: Female
  Weight: 42.75 kg

DRUGS (3)
  1. ALPRAZOLAM [Suspect]
     Active Substance: ALPRAZOLAM
     Indication: Anxiety
     Dates: start: 19950101, end: 20250613
  2. LASIX [Suspect]
     Active Substance: FUROSEMIDE
  3. ELIQUIS [Suspect]
     Active Substance: APIXABAN

REACTIONS (9)
  - Hallucination [None]
  - Panic reaction [None]
  - Agoraphobia [None]
  - Feeling abnormal [None]
  - Atrial fibrillation [None]
  - Pericardial effusion [None]
  - Cardiac arrest [None]
  - Rib fracture [None]
  - Therapy cessation [None]

NARRATIVE: CASE EVENT DATE: 20230613
